FAERS Safety Report 12365773 (Version 3)
Quarter: 2016Q2

REPORT INFORMATION
  Report Type: Report from Study
  Country: HK (occurrence: HK)
  Receive Date: 20160513
  Receipt Date: 20160603
  Transmission Date: 20160815
  Serious: Yes (Hospitalization, Other)
  Sender: FDA-Public Use
  Company Number: HK-ABBVIE-16P-075-1625069-00

PATIENT
  Age: 58 Year
  Sex: Female

DRUGS (43)
  1. RIBAVIRIN. [Concomitant]
     Active Substance: RIBAVIRIN
     Route: 048
     Dates: start: 20150508, end: 20150604
  2. ACTRAPID [Concomitant]
     Active Substance: INSULIN HUMAN
     Indication: PRODUCT USED FOR UNKNOWN INDICATION
     Dosage: 100 U/ML: QTY 1 VIAL
     Route: 058
  3. NEOMYCIN SULFATE. [Concomitant]
     Active Substance: NEOMYCIN SULFATE
     Indication: PRODUCT USED FOR UNKNOWN INDICATION
     Dosage: APPLY TO AFFECTED AREAS
     Route: 061
  4. AUGMENTIN (GENERIC SUBSTITUTE) [Concomitant]
     Indication: PRODUCT USED FOR UNKNOWN INDICATION
     Dosage: TAKE AT START OF MEAL
     Route: 048
  5. DASABUVIR [Suspect]
     Active Substance: DASABUVIR
     Dosage: AM AND PM
     Route: 048
     Dates: start: 20150402, end: 20150407
  6. AMLODIPINE [Concomitant]
     Active Substance: AMLODIPINE BESYLATE
     Route: 048
  7. THYMOL [Concomitant]
     Active Substance: THYMOL
     Indication: PRODUCT USED FOR UNKNOWN INDICATION
     Dosage: GARGLE COMPOUND MOUTHWASH 1 IN 4 BUCCAL) GARGLE TWICE DAILY WHEN NECESSARY
  8. AUGMENTIN [Concomitant]
     Active Substance: AMOXICILLIN\CLAVULANATE POTASSIUM
     Dosage: TAKE AT START OF MEAL
     Route: 048
  9. PARACETAMOL [Concomitant]
     Active Substance: ACETAMINOPHEN
     Indication: PRODUCT USED FOR UNKNOWN INDICATION
     Dosage: TAKE 1 TABLET EVERY 6 HOURS WHEN NECESSARY
     Route: 048
  10. OMBITASVIR/PARITAPREVIR/RITONAVIR [Suspect]
     Active Substance: OMBITASVIR\PARITAPREVIR\RITONAVIR
     Dosage: 150/100/25 MG QD (2 TABS ONCE DAILY IN AM)
     Route: 048
     Dates: start: 20150409, end: 20150410
  11. RIBAVIRIN. [Concomitant]
     Active Substance: RIBAVIRIN
     Indication: HEPATITIS C
     Dosage: 400 MG IN THE AM AND 600 MG IN THE AFTERNOON
     Route: 048
     Dates: start: 20150222, end: 20150227
  12. RIBAVIRIN. [Concomitant]
     Active Substance: RIBAVIRIN
     Route: 048
     Dates: start: 20150402, end: 20150507
  13. DASABUVIR [Suspect]
     Active Substance: DASABUVIR
     Dosage: AM AND PM
     Route: 048
     Dates: start: 20150409, end: 20150410
  14. INSULIN HUMAN [Concomitant]
     Active Substance: INSULIN HUMAN
     Indication: PRODUCT USED FOR UNKNOWN INDICATION
     Dosage: PENFILL 100U/ML 3ML 30 UNITS BEFORE BREAKFAST AND 16 UNITS BEFORE DINNER
     Route: 058
  15. LINAGLIPTIN [Concomitant]
     Active Substance: LINAGLIPTIN
     Indication: PRODUCT USED FOR UNKNOWN INDICATION
     Dosage: TAKE WITH MEAL
     Route: 048
  16. FAMOTIDINE. [Concomitant]
     Active Substance: FAMOTIDINE
     Indication: PRODUCT USED FOR UNKNOWN INDICATION
     Route: 048
  17. PANTOPRAZOLE [Concomitant]
     Active Substance: PANTOPRAZOLE SODIUM
     Indication: PRODUCT USED FOR UNKNOWN INDICATION
     Dosage: TAKE 1 HOUR BERFORE MEAL/EMPTY STOMACH
     Route: 048
  18. PIPERACILLIN AND TAZOBACTAM [Concomitant]
     Active Substance: PIPERACILLIN SODIUM\TAZOBACTAM SODIUM
     Dosage: PARENTERAL INJECTION 4.5G; QTY 9 VIAL
     Route: 051
  19. POTASSIUM CHLORIDE MIXTURE [Concomitant]
     Indication: PRODUCT USED FOR UNKNOWN INDICATION
     Dosage: 500MG/5ML TAKE WITH MEAL
     Route: 048
  20. OMBITASVIR/PARITAPREVIR/RITONAVIR [Suspect]
     Active Substance: OMBITASVIR\PARITAPREVIR\RITONAVIR
     Dosage: 150/100/25 MG QD (2 TABS ONCE DAILY IN AM)
     Route: 048
     Dates: start: 20150402, end: 20150407
  21. DASABUVIR [Suspect]
     Active Substance: DASABUVIR
     Indication: CHRONIC HEPATITIS C
     Dosage: AM AND PM
     Route: 048
     Dates: start: 20150222, end: 20150227
  22. AMLODIPINE [Concomitant]
     Active Substance: AMLODIPINE BESYLATE
     Dosage: HALF TABLET ONCE
     Route: 048
  23. INSULIN HUMAN [Concomitant]
     Active Substance: INSULIN HUMAN
     Dosage: PENFILL 100U/ML 3ML 20 UNITS BEFORE BREAKFAST AND 8 UNITS BEFORE DINNER
     Route: 058
  24. THYMOL [Concomitant]
     Active Substance: THYMOL
     Dosage: GARGLE COMPOUND MOUTHWASH 1 IN 4 BUCCAL) MOUTHWASH 1 IN 4: QTY - 240 ML
  25. AUGMENTIN [Concomitant]
     Active Substance: AMOXICILLIN\CLAVULANATE POTASSIUM
     Indication: PRODUCT USED FOR UNKNOWN INDICATION
     Dosage: TAKE AT THE START OF MEAL
     Route: 048
  26. PIPERACILLIN AND TAZOBACTAM [Concomitant]
     Active Substance: PIPERACILLIN SODIUM\TAZOBACTAM SODIUM
     Indication: PRODUCT USED FOR UNKNOWN INDICATION
     Dosage: PARENTERAL INJECTION 4.5G; QTY 3 VIAL
     Route: 051
  27. HYDROCORTISONE SODIUM SUCCINATE [Concomitant]
     Active Substance: HYDROCORTISONE SODIUM SUCCINATE
     Dosage: QTY- 6 VIAL
     Route: 051
  28. CROTAMITON [Concomitant]
     Active Substance: CROTAMITON
     Indication: PRODUCT USED FOR UNKNOWN INDICATION
     Dosage: APPLY TO AFFECTED AREAS
     Route: 061
  29. OMBITASVIR/PARITAPREVIR/RITONAVIR [Suspect]
     Active Substance: OMBITASVIR\PARITAPREVIR\RITONAVIR
     Indication: CHRONIC HEPATITIS C
     Dosage: 150/100/25 MG QD (2 TABS ONCE DAILY IN AM)
     Route: 048
     Dates: start: 20150222, end: 20150227
  30. INSULIN HUMAN [Concomitant]
     Active Substance: INSULIN HUMAN
     Dosage: PENFILL 100U/ML 3ML 30 UNITS BEFORE BREAKFAST AND 10 UNITS BEFORE DINNER
     Route: 058
  31. POTASSIUM CHLORIDE. [Concomitant]
     Active Substance: POTASSIUM CHLORIDE
     Indication: PRODUCT USED FOR UNKNOWN INDICATION
     Dosage: TAKE WITH MEALS
     Route: 048
  32. MUPIROCIN. [Concomitant]
     Active Substance: MUPIROCIN
     Indication: PRODUCT USED FOR UNKNOWN INDICATION
     Dosage: APPLY TO AFFECTED AREAS
     Route: 061
  33. CEFTRIAXONE DISODIUM [Concomitant]
     Active Substance: CEFTRIAXONE
     Indication: PRODUCT USED FOR UNKNOWN INDICATION
     Route: 042
  34. CEFTRIAXONE DISODIUM [Concomitant]
     Active Substance: CEFTRIAXONE
     Route: 042
  35. RIBAVIRIN. [Concomitant]
     Active Substance: RIBAVIRIN
     Dosage: 400 MG IN THE AM AND 600 MG IN THE AFTERNOON
     Route: 048
     Dates: start: 20150605, end: 20150614
  36. AMLODIPINE [Concomitant]
     Active Substance: AMLODIPINE BESYLATE
     Indication: PRODUCT USED FOR UNKNOWN INDICATION
     Dosage: 1.5 TABLETS DAILY
     Route: 048
  37. HYDROCORTISONE SODIUM SUCCINATE [Concomitant]
     Active Substance: HYDROCORTISONE SODIUM SUCCINATE
     Indication: PRODUCT USED FOR UNKNOWN INDICATION
     Route: 042
  38. CLOXACILLIN SODIUM [Concomitant]
     Active Substance: CLOXACILLIN SODIUM
     Indication: PRODUCT USED FOR UNKNOWN INDICATION
     Dosage: TAKE 1 HR BEFORE MEAL/EMPTY STOMACH
     Route: 048
  39. CLOXACILLIN SODIUM [Concomitant]
     Active Substance: CLOXACILLIN SODIUM
     Dosage: PARENTERAL INJECTION
     Route: 042
  40. SALBUTAMOL [Concomitant]
     Active Substance: ALBUTEROL
     Indication: PRODUCT USED FOR UNKNOWN INDICATION
     Dosage: 2 PUFFS FOUR TIMES DAILY AS NECESSARY
     Route: 055
  41. ERYTHROPOIETIN [Concomitant]
     Active Substance: ERYTHROPOIETIN
     Indication: PRODUCT USED FOR UNKNOWN INDICATION
     Dosage: 5000 IU/0.3ML ADMINISTERED PARENTERALLY IN THE AM
     Route: 050
  42. EXEMESTANE. [Concomitant]
     Active Substance: EXEMESTANE
     Indication: PRODUCT USED FOR UNKNOWN INDICATION
     Dosage: TAKE AFTER MEAL
     Route: 048
  43. NIFEDIPINE. [Concomitant]
     Active Substance: NIFEDIPINE
     Indication: PRODUCT USED FOR UNKNOWN INDICATION
     Route: 048

REACTIONS (6)
  - Renal impairment [Unknown]
  - Erosive oesophagitis [Unknown]
  - Cellulitis [Recovered/Resolved]
  - Cellulitis [Unknown]
  - Dehydration [Unknown]
  - Anaemia [Unknown]

NARRATIVE: CASE EVENT DATE: 20150227
